FAERS Safety Report 12174301 (Version 1)
Quarter: 2016Q1

REPORT INFORMATION
  Report Type: Not Available
  Country: US (occurrence: US)
  Receive Date: 20160313
  Receipt Date: 20160313
  Transmission Date: 20160526
  Serious: Yes (Hospitalization, Disabling)
  Sender: FDA-Public Use
  Company Number: US-ANIPHARMA-2016-US-001124

PATIENT
  Age: 67 Year
  Sex: Male

DRUGS (3)
  1. PHENYTOIN SODIUM (NON-SPECIFIC) [Suspect]
     Active Substance: PHENYTOIN SODIUM
  2. VALPROIC ACID (NON-SPECIFIC) [Concomitant]
     Active Substance: VALPROIC ACID
  3. CARBAMAZEPINE. [Concomitant]
     Active Substance: CARBAMAZEPINE

REACTIONS (2)
  - Stevens-Johnson syndrome [Unknown]
  - Obliterative bronchiolitis [Recovered/Resolved with Sequelae]
